FAERS Safety Report 10717887 (Version 1)
Quarter: 2015Q1

REPORT INFORMATION
  Report Type: Spontaneous
  Country: DE (occurrence: DE)
  Receive Date: 20150116
  Receipt Date: 20150116
  Transmission Date: 20150721
  Serious: Yes (Hospitalization, Other)
  Sender: FDA-Public Use
  Company Number: DE-ELI_LILLY_AND_COMPANY-DE201501000979

PATIENT
  Age: 75 Year
  Sex: Male

DRUGS (1)
  1. FORSTEO [Suspect]
     Active Substance: TERIPARATIDE
     Indication: PRODUCT USED FOR UNKNOWN INDICATION
     Dosage: UNK UNK, UNKNOWN
     Route: 058
     Dates: start: 201412, end: 201412

REACTIONS (10)
  - Fluid retention [Unknown]
  - Peripheral swelling [Recovered/Resolved]
  - Dysuria [Unknown]
  - Blood calcium increased [Unknown]
  - Skin hypertrophy [Unknown]
  - Spinal fracture [Unknown]
  - Blood alkaline phosphatase increased [Unknown]
  - Micturition urgency [Unknown]
  - Dizziness [Unknown]
  - General physical health deterioration [Unknown]

NARRATIVE: CASE EVENT DATE: 201412
